FAERS Safety Report 22598434 (Version 1)
Quarter: 2023Q2

REPORT INFORMATION
  Report Type: Other
  Country: None (occurrence: US)
  Receive Date: 20230614
  Receipt Date: 20230614
  Transmission Date: 20230722
  Serious: Yes (Life-Threatening, Hospitalization, Other)
  Sender: FDA-Public Use
  Company Number: US-ASPIRO PHARMA LTD-2142684

PATIENT
  Age: 59 Year
  Sex: Male

DRUGS (2)
  1. ACETAMINOPHEN [Suspect]
     Active Substance: ACETAMINOPHEN
     Indication: Product used for unknown indication
     Route: 048
  2. IBUPROFEN [Suspect]
     Active Substance: IBUPROFEN
     Route: 048

REACTIONS (7)
  - Encephalopathy [Recovered/Resolved]
  - Body temperature decreased [Recovered/Resolved]
  - Blood pressure decreased [Recovered/Resolved]
  - Toxicity to various agents [Recovered/Resolved]
  - Liver injury [Recovered/Resolved]
  - Overdose [Unknown]
  - Intentional product misuse [Unknown]
